FAERS Safety Report 23324234 (Version 1)
Quarter: 2023Q4

REPORT INFORMATION
  Report Type: Report from Study
  Country: AR (occurrence: AR)
  Receive Date: 20231221
  Receipt Date: 20231221
  Transmission Date: 20240110
  Serious: Yes (Other)
  Sender: FDA-Public Use
  Company Number: AR-ABBVIE-5407674

PATIENT
  Sex: Female

DRUGS (1)
  1. HUMIRA [Suspect]
     Active Substance: ADALIMUMAB
     Indication: Rheumatoid arthritis
     Dosage: FORM STRENGTH 40 MILLIGRAM,
     Route: 058
     Dates: start: 20230119, end: 202307

REACTIONS (2)
  - Chondromatosis [Not Recovered/Not Resolved]
  - Cyst [Not Recovered/Not Resolved]

NARRATIVE: CASE EVENT DATE: 20230101
